FAERS Safety Report 16776362 (Version 2)
Quarter: 2019Q3

REPORT INFORMATION
  Report Type: Spontaneous
  Country: JP (occurrence: JP)
  Receive Date: 20190905
  Receipt Date: 20190924
  Transmission Date: 20191005
  Serious: Yes (Hospitalization)
  Sender: FDA-Public Use
  Company Number: JP-ASTRAZENECA-2019SF24462

PATIENT
  Age: 27302 Day
  Sex: Female
  Weight: 34 kg

DRUGS (6)
  1. MAGNESIUM OXIDE. [Suspect]
     Active Substance: MAGNESIUM OXIDE
     Indication: CONSTIPATION
     Dosage: 2.0DF AS REQUIRED
     Route: 048
     Dates: start: 20190805, end: 20190808
  2. KYTRIL [Suspect]
     Active Substance: GRANISETRON HYDROCHLORIDE
     Indication: VOMITING
     Route: 048
     Dates: start: 20190730, end: 20190804
  3. LYNPARZA [Suspect]
     Active Substance: OLAPARIB
     Indication: OVARIAN CANCER
     Route: 048
     Dates: start: 20190729, end: 20190804
  4. OLANZAPINE. [Suspect]
     Active Substance: OLANZAPINE
     Indication: VOMITING
     Route: 048
     Dates: start: 20190804, end: 20190808
  5. METOCLOPRAMIDE. [Suspect]
     Active Substance: METOCLOPRAMIDE
     Indication: VOMITING
     Dosage: 2.0DF AS REQUIRED
     Route: 048
     Dates: start: 20190730, end: 20190807
  6. BROTIZOLAM [Suspect]
     Active Substance: BROTIZOLAM
     Indication: INSOMNIA
     Route: 048
     Dates: start: 20190804, end: 20190807

REACTIONS (4)
  - Anaemia [Not Recovered/Not Resolved]
  - Vomiting [Recovering/Resolving]
  - Intestinal obstruction [Recovering/Resolving]
  - Nausea [Recovering/Resolving]

NARRATIVE: CASE EVENT DATE: 20190804
